FAERS Safety Report 5430913-3 (Version None)
Quarter: 2007Q3

REPORT INFORMATION
  Report Type: 
  Country: None (occurrence: None)
  Receive Date: 20070830
  Receipt Date: 20070823
  Transmission Date: 20080115
  Serious: Yes (Other)
  Sender: FDA-Public Use
  Company Number: A0666382A

PATIENT
  Sex: Female

DRUGS (3)
  1. NICORETTE OTC GUM, MINT [Suspect]
     Indication: SMOKING CESSATION THERAPY
     Route: 002
  2. NICOTINELL [Suspect]
     Indication: SMOKING CESSATION THERAPY
     Route: 062
     Dates: start: 20070602, end: 20070609
  3. NICOTINELL [Suspect]
     Route: 002
     Dates: start: 20040308, end: 20060301

REACTIONS (4)
  - ANXIETY [None]
  - CHEMICAL POISONING [None]
  - DEPENDENCE [None]
  - OVERDOSE [None]
